FAERS Safety Report 6200991-2 (Version None)
Quarter: 2009Q2

REPORT INFORMATION
  Report Type: 
  Country: None (occurrence: None)
  Receive Date: 20090525
  Receipt Date: 20090512
  Transmission Date: 20091009
  Serious: Yes (Other)
  Sender: FDA-Public Use
  Company Number: US-ROCHE-581441

PATIENT
  Sex: Male
  Weight: 72.6 kg

DRUGS (1)
  1. ACCUTANE [Suspect]
     Indication: ACNE
     Route: 065
     Dates: start: 19971125, end: 19980301

REACTIONS (9)
  - ANAEMIA [None]
  - ANAL ABSCESS [None]
  - ARTHRALGIA [None]
  - COLITIS ULCERATIVE [None]
  - CROHN'S DISEASE [None]
  - DEPRESSION [None]
  - INFLAMMATORY BOWEL DISEASE [None]
  - PILONIDAL CYST [None]
  - SUICIDAL IDEATION [None]
